FAERS Safety Report 14474367 (Version 1)
Quarter: 2018Q1

REPORT INFORMATION
  Report Type: Spontaneous
  Country: US (occurrence: US)
  Receive Date: 20180201
  Receipt Date: 20180201
  Transmission Date: 20180509
  Serious: No
  Sender: FDA-Public Use
  Company Number: US-ENDO PHARMACEUTICALS INC-2017-001153

PATIENT
  Age: 63 Year
  Sex: Female

DRUGS (3)
  1. ASMANEX [Concomitant]
     Active Substance: MOMETASONE FUROATE
     Indication: BRONCHIAL HYPERREACTIVITY
  2. BUPROPION HYDROCHLORIDE XL [Suspect]
     Active Substance: BUPROPION HYDROCHLORIDE
     Indication: DEPRESSION
     Dosage: 1 DF, DAILY
     Route: 048
     Dates: start: 20161003, end: 20170128
  3. NASONEX [Concomitant]
     Active Substance: MOMETASONE FUROATE
     Indication: BRONCHIAL HYPERREACTIVITY

REACTIONS (7)
  - Abdominal discomfort [Recovering/Resolving]
  - Tenderness [Not Recovered/Not Resolved]
  - Unevaluable event [Recovering/Resolving]
  - Bruxism [Recovering/Resolving]
  - Restless legs syndrome [Recovering/Resolving]
  - Breast enlargement [Recovering/Resolving]
  - Bladder disorder [Not Recovered/Not Resolved]

NARRATIVE: CASE EVENT DATE: 20161003
